FAERS Safety Report 8332673-5 (Version None)
Quarter: 2012Q1

REPORT INFORMATION
  Report Type: 
  Country: None (occurrence: None)
  Receive Date: 20120315
  Receipt Date: 20110526
  Transmission Date: 20120608
  Serious: No
  Sender: FDA-Public Use
  Company Number: PHHY2011US47905

PATIENT
  Age: 33 Year
  Sex: Female
  Weight: 63.9 kg

DRUGS (1)
  1. GILENYA [Suspect]
     Indication: MULTIPLE SCLEROSIS
     Dosage: 1 DF, DAILY, ORAL
     Route: 048
     Dates: start: 20110113

REACTIONS (3)
  - MUSCULAR WEAKNESS [None]
  - CHEST DISCOMFORT [None]
  - PARAESTHESIA [None]
